FAERS Safety Report 6551175-X (Version None)
Quarter: 2010Q1

REPORT INFORMATION
  Report Type: 
  Country: None (occurrence: None)
  Receive Date: 20100121
  Receipt Date: 20100107
  Transmission Date: 20100710
  Serious: Yes (Other)
  Sender: FDA-Public Use
  Company Number: 2010AL000251

PATIENT
  Age: 14 Year
  Sex: Female

DRUGS (5)
  1. CETIRIZINE HCL [Suspect]
     Indication: ACARODERMATITIS
     Dates: start: 20090917, end: 20091013
  2. PERMETHRIN [Suspect]
     Indication: ACARODERMATITIS
     Dosage: TOP
     Route: 061
     Dates: start: 20090917, end: 20090924
  3. CERVARIX [Concomitant]
  4. DEPO-PROVERA [Concomitant]
  5. MALATHION [Concomitant]

REACTIONS (2)
  - DRUG EXPOSURE DURING PREGNANCY [None]
  - PREGNANCY WITH INJECTABLE CONTRACEPTIVE [None]
